FAERS Safety Report 20895980 (Version 1)
Quarter: 2022Q2

REPORT INFORMATION
  Report Type: Spontaneous
  Country: JP (occurrence: JP)
  Receive Date: 20220531
  Receipt Date: 20220531
  Transmission Date: 20220721
  Serious: No
  Sender: FDA-Public Use
  Company Number: JP-ELI_LILLY_AND_COMPANY-JP202205013112

PATIENT
  Age: 70 Year
  Sex: Male

DRUGS (2)
  1. DULOXETINE HYDROCHLORIDE [Suspect]
     Active Substance: DULOXETINE HYDROCHLORIDE
     Indication: Product used for unknown indication
     Dosage: 20 MG, DAILY
     Route: 048
  2. GASMOTIN [LEVOSULPIRIDE] [Concomitant]
     Route: 048

REACTIONS (7)
  - Liver function test increased [Unknown]
  - Discomfort [Unknown]
  - Furuncle [Unknown]
  - Eosinophil count increased [Unknown]
  - Stomatitis [Unknown]
  - Eyelid oedema [Unknown]
  - Dizziness [Unknown]
